FAERS Safety Report 15643484 (Version 1)
Quarter: 2018Q4

REPORT INFORMATION
  Report Type: Spontaneous
  Country: US (occurrence: US)
  Receive Date: 20181121
  Receipt Date: 20181121
  Transmission Date: 20190205
  Serious: Yes (Hospitalization)
  Sender: FDA-Public Use
  Company Number: None

PATIENT
  Age: 60 Year
  Sex: Male
  Weight: 85.5 kg

DRUGS (2)
  1. AMLODIPINE BESYLATE 10MG [Suspect]
     Active Substance: AMLODIPINE BESYLATE
     Indication: BLOOD PRESSURE INCREASED
     Dosage: ?          QUANTITY:1 TABLET(S);?
     Route: 048
     Dates: start: 20181103, end: 20181110
  2. LISINOPRIL. [Concomitant]
     Active Substance: LISINOPRIL

REACTIONS (7)
  - Libido decreased [None]
  - Therapy change [None]
  - Hyperhidrosis [None]
  - Drug effect decreased [None]
  - Hot flush [None]
  - Rash [None]
  - Skin exfoliation [None]

NARRATIVE: CASE EVENT DATE: 20181110
